FAERS Safety Report 7663102-2 (Version None)
Quarter: 2011Q3

REPORT INFORMATION
  Report Type: 
  Country: None (occurrence: None)
  Receive Date: 20110805
  Receipt Date: 20100812
  Transmission Date: 20111222
  Serious: No
  Sender: FDA-Public Use
  Company Number: US-ABBOTT-10P-163-0663718-00

PATIENT
  Sex: Male
  Weight: 122.58 kg

DRUGS (3)
  1. BLOOD PRESSURE MEDICATION [Concomitant]
     Indication: PRODUCT USED FOR UNKNOWN INDICATION
  2. NIASPAN [Suspect]
     Indication: PRODUCT USED FOR UNKNOWN INDICATION
     Dosage: 1000 MG DAILY AT BEDTIME
     Dates: start: 20090801, end: 20100701
  3. NIASPAN [Suspect]
     Dates: start: 20100701

REACTIONS (5)
  - FEELING HOT [None]
  - SWELLING FACE [None]
  - FLUSHING [None]
  - ERYTHEMA [None]
  - OEDEMA PERIPHERAL [None]
